FAERS Safety Report 16142136 (Version 1)
Quarter: 2019Q2

REPORT INFORMATION
  Report Type: Spontaneous
  Country: US (occurrence: US)
  Receive Date: 20190401
  Receipt Date: 20190401
  Transmission Date: 20190711
  Serious: No
  Sender: FDA-Public Use
  Company Number: US-SA-2019SA084724

PATIENT
  Sex: Female

DRUGS (7)
  1. ELIDEL [Concomitant]
     Active Substance: PIMECROLIMUS
  2. TRIAMCINOLONE ACETONIDE. [Concomitant]
     Active Substance: TRIAMCINOLONE ACETONIDE
  3. DUPIXENT [Suspect]
     Active Substance: DUPILUMAB
     Indication: DERMATITIS ATOPIC
     Dosage: 300 MG, QOW
     Route: 058
     Dates: start: 20190201
  4. CITALOPRAM [Concomitant]
     Active Substance: CITALOPRAM HYDROBROMIDE
  5. FLONASE [Concomitant]
     Active Substance: FLUTICASONE PROPIONATE
  6. ADAPALENE. [Concomitant]
     Active Substance: ADAPALENE
  7. PREDNISONE. [Concomitant]
     Active Substance: PREDNISONE

REACTIONS (1)
  - Dermatitis atopic [Recovered/Resolved]
